FAERS Safety Report 9895781 (Version 1)
Quarter: 2014Q1

REPORT INFORMATION
  Report Type: Spontaneous
  Country: US (occurrence: US)
  Receive Date: 20140213
  Receipt Date: 20140213
  Transmission Date: 20141002
  Serious: No
  Sender: FDA-Public Use
  Company Number: US-BRISTOL-MYERS SQUIBB COMPANY-19474303

PATIENT
  Sex: Male

DRUGS (1)
  1. ABATACEPT SUBQ INJECTION 125MG/ML [Suspect]
     Dosage: LAST INJECTION WAS ON 20SEP2013

REACTIONS (2)
  - Fatigue [Unknown]
  - Arthralgia [Unknown]
